FAERS Safety Report 8507283-7 (Version None)
Quarter: 2012Q3

REPORT INFORMATION
  Report Type: 
  Country: None (occurrence: None)
  Receive Date: 20120712
  Receipt Date: 20120711
  Transmission Date: 20120928
  Serious: Yes (Hospitalization)
  Sender: FDA-Public Use
  Company Number: FR-ROCHE-1083716

PATIENT
  Sex: Female
  Weight: 58.7 kg

DRUGS (14)
  1. BORTEZOMIB [Suspect]
     Indication: MANTLE CELL LYMPHOMA
     Dosage: D1, D4, D8, D11
     Route: 058
     Dates: start: 20120614
  2. GLIMEPIRIDE [Concomitant]
     Indication: TYPE 2 DIABETES MELLITUS
     Route: 048
     Dates: start: 20070101
  3. ATORVASTATIN [Concomitant]
     Indication: HYPERCHOLESTEROLAEMIA
     Route: 048
     Dates: start: 20070101
  4. SOTALOL HCL [Concomitant]
     Indication: TACHYCARDIA
     Route: 048
     Dates: start: 20070101, end: 20120624
  5. VALACYCLOVIR HYDROCHLORIDE [Concomitant]
     Indication: ANTIVIRAL PROPHYLAXIS
     Route: 048
     Dates: start: 20120618, end: 20120624
  6. ZOLPIDEM [Concomitant]
     Indication: INSOMNIA
     Route: 048
     Dates: start: 20120618, end: 20120624
  7. MABTHERA [Suspect]
     Indication: MANTLE CELL LYMPHOMA
     Dosage: D1
     Route: 041
     Dates: start: 20120614
  8. BORTEZOMIB [Suspect]
  9. GLUCOPHAGE [Concomitant]
     Indication: TYPE 2 DIABETES MELLITUS
     Route: 048
     Dates: start: 20070101
  10. TRANDOLAPRIL [Concomitant]
     Indication: HYPERTENSION
     Route: 048
     Dates: start: 20070101
  11. BENDAMUSTINE HYDROCHLORIDE [Suspect]
     Indication: MANTLE CELL LYMPHOMA
     Dosage: D1 AND D2
     Route: 041
     Dates: start: 20120614
  12. BACTRIM DS [Concomitant]
     Indication: ANTIFUNGAL PROPHYLAXIS
     Route: 048
     Dates: start: 20120618, end: 20120624
  13. DEXAMETHASONE [Suspect]
     Indication: MANTLE CELL LYMPHOMA
     Dosage: D2
     Route: 041
     Dates: start: 20120615
  14. POTASSIUM CHLORIDE [Concomitant]
     Indication: HYPOKALAEMIA
     Route: 048
     Dates: start: 20070101

REACTIONS (2)
  - PYREXIA [None]
  - HYPOGLYCAEMIA [None]
